FAERS Safety Report 8927551 (Version 2)
Quarter: 2012Q4

REPORT INFORMATION
  Report Type: 
  Country: FR (occurrence: FR)
  Receive Date: 20121127
  Receipt Date: 20121210
  Transmission Date: 20130627
  Serious: Yes (Other)
  Sender: FDA-Public Use
  Company Number: FR-BAUSCH-BL-2012-001821

PATIENT
  Age: 84 Year
  Sex: Male

DRUGS (10)
  1. YELLOX [Suspect]
     Indication: CYSTOID MACULAR OEDEMA
     Route: 047
     Dates: start: 20120926, end: 20121011
  2. KARDEGIC [Concomitant]
  3. CARDENSIEL [Concomitant]
  4. VASTAREL [Concomitant]
  5. FORLAX [Concomitant]
  6. ALLOPURINOL [Concomitant]
  7. OMEXEL [Concomitant]
  8. AVODART [Concomitant]
  9. LERCAN [Concomitant]
  10. XARELTO [Concomitant]

REACTIONS (2)
  - Rebound effect [Recovering/Resolving]
  - Off label use [Recovered/Resolved]
